FAERS Safety Report 23932524 (Version 1)
Quarter: 2024Q2

REPORT INFORMATION
  Report Type: Other
  Country: US (occurrence: None)
  Receive Date: 20240603
  Receipt Date: 20240603
  Transmission Date: 20240715
  Serious: Yes (Death)
  Sender: FDA-Public Use
  Company Number: US-ROCHE-3573839

PATIENT
  Age: 53 Year
  Sex: Male

DRUGS (1)
  1. OCREVUS [Suspect]
     Active Substance: OCRELIZUMAB
     Indication: Multiple sclerosis
     Dosage: INFUSE 300MG INTRAVENOUSLY ON DAYS 1 AND 15 THEN INFUSE 600MG INTRAVENOUSLY EVERY 6 MONTHS
     Route: 042
     Dates: start: 20231003

REACTIONS (1)
  - Death [Fatal]
